FAERS Safety Report 7139099-0 (Version None)
Quarter: 2010Q4

REPORT INFORMATION
  Report Type: 
  Country: None (occurrence: None)
  Receive Date: 20101206
  Receipt Date: 20101201
  Transmission Date: 20110411
  Serious: Yes (Life-Threatening, Hospitalization)
  Sender: FDA-Public Use
  Company Number: B0686918A

PATIENT
  Age: 74 Year
  Sex: Female

DRUGS (3)
  1. AUGMENTIN [Suspect]
     Route: 065
     Dates: start: 20101001, end: 20101001
  2. DI-HYDAN [Suspect]
     Indication: CONVULSION
     Route: 048
     Dates: start: 20101025, end: 20101028
  3. RIVOTRIL [Concomitant]
     Indication: EPILEPSY
     Dosage: 10DROP PER DAY
     Route: 048

REACTIONS (3)
  - CHOLESTASIS [None]
  - HEPATOCELLULAR INJURY [None]
  - VOMITING [None]
